FAERS Safety Report 13656467 (Version 1)
Quarter: 2017Q2

REPORT INFORMATION
  Report Type: Spontaneous
  Country: US (occurrence: US)
  Receive Date: 20170615
  Receipt Date: 20170615
  Transmission Date: 20170830
  Serious: Yes (Other)
  Sender: FDA-Public Use
  Company Number: US-PFIZER INC-2017256712

PATIENT
  Age: 57 Year
  Sex: Male

DRUGS (1)
  1. SODIUM NITROPRUSSIDE. [Suspect]
     Active Substance: SODIUM NITROPRUSSIDE
     Indication: HYPOTENSIVE ANAESTHESIA PROCEDURE
     Dosage: UNK

REACTIONS (2)
  - Basal ganglia infarction [Recovering/Resolving]
  - Encephalopathy [Recovering/Resolving]
